FAERS Safety Report 25284505 (Version 2)
Quarter: 2025Q2

REPORT INFORMATION
  Report Type: Spontaneous
  Country: US (occurrence: US)
  Receive Date: 20250508
  Receipt Date: 20250519
  Transmission Date: 20250717
  Serious: Yes (Hospitalization)
  Sender: TEVA
  Company Number: US-TEVA-VS-3190752

PATIENT
  Age: 74 Year
  Sex: Male

DRUGS (1)
  1. OCTREOTIDE [Suspect]
     Active Substance: OCTREOTIDE
     Indication: Pancreatic neuroendocrine tumour metastatic
     Dosage: OCTREOTIDE G
     Route: 065

REACTIONS (3)
  - Cholelithiasis [Recovered/Resolved]
  - Biliary colic [Recovered/Resolved]
  - Cholangitis [Recovered/Resolved]
